FAERS Safety Report 4292253-8 (Version None)
Quarter: 2004Q1

REPORT INFORMATION
  Report Type: 
  Country: None (occurrence: None)
  Receive Date: 20040211
  Receipt Date: 20040105
  Transmission Date: 20041129
  Serious: Yes (Other)
  Sender: FDA-Public Use
  Company Number: JP-GLAXOSMITHKLINE-B0319043A

PATIENT
  Age: 77 Year
  Sex: Male

DRUGS (9)
  1. CEFTAZIDIME SODIUM [Suspect]
     Dosage: 4G PER DAY
     Route: 042
     Dates: start: 20030110, end: 20030116
  2. NICARDIPINE HCL [Concomitant]
     Route: 065
  3. THEOPHYLLINE [Concomitant]
     Route: 048
  4. AMBROXOL [Concomitant]
     Route: 048
  5. SERRAPEPTASE [Concomitant]
     Route: 048
  6. ETIZOLAM [Concomitant]
     Route: 048
  7. CEFAZOLIN SODIUM [Concomitant]
     Route: 065
     Dates: start: 20021217, end: 20021219
  8. CEFOTIAM HYDROCHLORIDE [Concomitant]
     Route: 065
     Dates: start: 20021220, end: 20021224
  9. CEFOTIAM HYDROCHLORIDE [Concomitant]
     Route: 065
     Dates: start: 20030106, end: 20030109

REACTIONS (1)
  - PLATELET COUNT DECREASED [None]
